FAERS Safety Report 22613578 (Version 3)
Quarter: 2023Q4

REPORT INFORMATION
  Report Type: Spontaneous
  Country: US (occurrence: US)
  Receive Date: 20230619
  Receipt Date: 20231004
  Transmission Date: 20240109
  Serious: Yes (Death, Life-Threatening, Hospitalization, Other)
  Sender: FDA-Public Use
  Company Number: US-MLMSERVICE-20230602-4310803-1

PATIENT
  Age: 28 Year
  Sex: Male

DRUGS (5)
  1. ABACAVIR AND LAMIVUDINE [Suspect]
     Active Substance: ABACAVIR SULFATE\LAMIVUDINE
     Indication: Antiretroviral therapy
     Dosage: UNK, TWO TIMES A DAY (12 HRS)
     Route: 065
  2. COBICISTAT\DARUNAVIR ETHANOLATE [Suspect]
     Active Substance: COBICISTAT\DARUNAVIR ETHANOLATE
     Indication: Antiretroviral therapy
     Dosage: UNK, TWO TIMES A DAY (12 HRS)
     Route: 065
  3. BRINCIDOFOVIR [Concomitant]
     Active Substance: BRINCIDOFOVIR
     Indication: Monkeypox
     Dosage: UNK
     Route: 065
  4. BRINCIDOFOVIR [Concomitant]
     Active Substance: BRINCIDOFOVIR
     Indication: Acquired immunodeficiency syndrome
  5. TECOVIRIMAT [Concomitant]
     Active Substance: TECOVIRIMAT
     Indication: Monkeypox
     Dosage: UNK
     Route: 048

REACTIONS (7)
  - Acute kidney injury [Fatal]
  - Disease progression [Fatal]
  - Acidosis [Fatal]
  - Encephalopathy [Fatal]
  - Monkeypox [Fatal]
  - Immune reconstitution inflammatory syndrome [Fatal]
  - Tenosynovitis [Fatal]
